FAERS Safety Report 21664837 (Version 1)
Quarter: 2022Q4

REPORT INFORMATION
  Report Type: Spontaneous
  Country: None (occurrence: US)
  Receive Date: 20221130
  Receipt Date: 20221130
  Transmission Date: 20230113
  Serious: No
  Sender: FDA-Public Use
  Company Number: US-GREER Laboratories, Inc.-2135413

PATIENT
  Age: 15 Year
  Sex: Male
  Weight: 55.455 kg

DRUGS (1)
  1. CORYLUS AMERICANA POLLEN\HAZELNUT, UNSPECIFIED [Suspect]
     Active Substance: CORYLUS AMERICANA POLLEN\HAZELNUT, UNSPECIFIED
     Indication: Anaphylactic reaction
     Dates: start: 20220822, end: 20220822

REACTIONS (2)
  - Drug ineffective [None]
  - No adverse event [None]

NARRATIVE: CASE EVENT DATE: 20220822
